FAERS Safety Report 7071656-2 (Version None)
Quarter: 2010Q4

REPORT INFORMATION
  Report Type: 
  Country: None (occurrence: None)
  Receive Date: 20101029
  Receipt Date: 20091002
  Transmission Date: 20110411
  Serious: No
  Sender: FDA-Public Use
  Company Number: A0810143A

PATIENT
  Age: 88 Year
  Sex: Female

DRUGS (14)
  1. ADVAIR DISKUS 100/50 [Suspect]
     Indication: CHRONIC OBSTRUCTIVE PULMONARY DISEASE
     Dosage: 1PUFF TWICE PER DAY
     Route: 055
  2. IPRATROPIUM BROMIDE [Suspect]
     Route: 055
  3. ALBUTEROL SULFATE [Suspect]
     Route: 055
     Dates: start: 20090601
  4. ATENOLOL [Concomitant]
  5. ALENDRONATE SODIUM [Concomitant]
  6. FELODIPINE [Concomitant]
  7. FUROSEMIDE [Concomitant]
  8. HYDROCODONE [Concomitant]
  9. SIMVASTATIN [Concomitant]
  10. ASPIRIN [Concomitant]
  11. CALCIUM [Concomitant]
  12. OXYGEN [Concomitant]
  13. MULTI-VITAMIN [Concomitant]
  14. VITAMIN-MINERAL COMPOUND TAB [Concomitant]

REACTIONS (1)
  - DYSPHONIA [None]
